FAERS Safety Report 9399132 (Version 1)
Quarter: 2013Q3

REPORT INFORMATION
  Report Type: Spontaneous
  Country: FR (occurrence: FR)
  Receive Date: 20130715
  Receipt Date: 20130715
  Transmission Date: 20140515
  Serious: Yes (Hospitalization)
  Sender: FDA-Public Use
  Company Number: FR-ASTRAZENECA-2013SE51303

PATIENT
  Age: 22115 Day
  Sex: Male

DRUGS (1)
  1. ZESTORETIC [Suspect]
     Route: 048
     Dates: start: 1993, end: 20120919

REACTIONS (1)
  - Angioedema [Recovered/Resolved]
